FAERS Safety Report 13637404 (Version 1)
Quarter: 2017Q2

REPORT INFORMATION
  Report Type: Spontaneous
  Country: US (occurrence: US)
  Receive Date: 20170608
  Receipt Date: 20170608
  Transmission Date: 20170830
  Serious: No
  Sender: FDA-Public Use
  Company Number: None

PATIENT
  Sex: Female

DRUGS (1)
  1. IMATINIB MESYLATE 400MG RANBAXY [Suspect]
     Active Substance: IMATINIB MESYLATE
     Indication: NEOPLASM MALIGNANT
     Route: 048
     Dates: start: 20170510

REACTIONS (4)
  - Skin discolouration [None]
  - Vomiting [None]
  - Diarrhoea [None]
  - Rash [None]

NARRATIVE: CASE EVENT DATE: 20170513
